FAERS Safety Report 23459048 (Version 1)
Quarter: 2024Q1

REPORT INFORMATION
  Report Type: Other
  Country: TW (occurrence: None)
  Receive Date: 20240131
  Receipt Date: 20240131
  Transmission Date: 20240409
  Serious: Yes (Other)
  Sender: FDA-Public Use
  Company Number: JP-ROCHE-3494766

PATIENT
  Age: 66 Year

DRUGS (1)
  1. ATEZOLIZUMAB [Suspect]
     Active Substance: ATEZOLIZUMAB
     Indication: Transitional cell carcinoma metastatic
     Route: 065

REACTIONS (5)
  - Anaemia [Unknown]
  - Neutropenia [Unknown]
  - Peritoneal tuberculosis [Unknown]
  - Toxic epidermal necrolysis [Unknown]
  - Thrombocytopenia [Unknown]
